FAERS Safety Report 19676973 (Version 2)
Quarter: 2022Q2

REPORT INFORMATION
  Report Type: Spontaneous
  Country: US (occurrence: US)
  Receive Date: 20210809
  Receipt Date: 20220411
  Transmission Date: 20220721
  Serious: No
  Sender: FDA-Public Use
  Company Number: US-PFIZER INC-202100969689

PATIENT
  Age: 65 Year
  Sex: Female

DRUGS (4)
  1. IBRANCE [Suspect]
     Active Substance: PALBOCICLIB
     Dosage: 125MG
     Dates: start: 20210709
  2. IBRANCE [Suspect]
     Active Substance: PALBOCICLIB
     Dosage: 125 MG
     Dates: start: 20210723
  3. IBRANCE [Suspect]
     Active Substance: PALBOCICLIB
     Dosage: 125 MG
     Route: 048
     Dates: start: 20210724
  4. IBRANCE [Suspect]
     Active Substance: PALBOCICLIB
     Dosage: 125MG
     Dates: start: 20210727

REACTIONS (15)
  - Dizziness [Unknown]
  - Decreased appetite [Unknown]
  - Discomfort [Unknown]
  - Chest discomfort [Unknown]
  - Heart rate increased [Unknown]
  - Tachycardia [Unknown]
  - Dyspnoea [Unknown]
  - Head discomfort [Unknown]
  - Nausea [Unknown]
  - Bone disorder [Unknown]
  - Skin exfoliation [Unknown]
  - Feeling abnormal [Unknown]
  - Malaise [Unknown]
  - Condition aggravated [Unknown]
  - Depression [Unknown]

NARRATIVE: CASE EVENT DATE: 20210101
